FAERS Safety Report 18692073 (Version 2)
Quarter: 2021Q2

REPORT INFORMATION
  Report Type: Report from Study
  Country: MX (occurrence: MX)
  Receive Date: 20210102
  Receipt Date: 20210419
  Transmission Date: 20210717
  Serious: Yes (Other)
  Sender: FDA-Public Use
  Company Number: NVSC2020MX345107

PATIENT
  Sex: Female
  Weight: 52 kg

DRUGS (3)
  1. GALVUS MET [Suspect]
     Active Substance: METFORMIN HYDROCHLORIDE\VILDAGLIPTIN
     Dosage: 1 DF, TID
     Route: 048
  2. GALVUS MET [Suspect]
     Active Substance: METFORMIN HYDROCHLORIDE\VILDAGLIPTIN
     Indication: DIABETES MELLITUS
     Dosage: 1 DF (TWO MONTHS AGO)
     Route: 048
     Dates: start: 2017
  3. GALVUS MET [Suspect]
     Active Substance: METFORMIN HYDROCHLORIDE\VILDAGLIPTIN
     Dosage: 1 DF, QD, STARTED TWO MONTHS AGO, IN THE MORNING AND AT NIGHT
     Route: 048

REACTIONS (4)
  - Off label use [Unknown]
  - Cataract [Recovered/Resolved]
  - Hypoacusis [Recovered/Resolved]
  - Visual impairment [Recovered/Resolved]
